FAERS Safety Report 15121004 (Version 1)
Quarter: 2018Q3

REPORT INFORMATION
  Report Type: Report from Study
  Country: EG (occurrence: EG)
  Receive Date: 20180709
  Receipt Date: 20180709
  Transmission Date: 20181010
  Serious: Yes (Death)
  Sender: FDA-Public Use
  Company Number: EG-SA-2018SA176356

PATIENT
  Age: 70 Year
  Sex: Male

DRUGS (1)
  1. INSULIN GLARGINE [Suspect]
     Active Substance: INSULIN GLARGINE
     Indication: TYPE 2 DIABETES MELLITUS
     Dosage: 12 IU, QD
     Route: 058
     Dates: start: 20170822, end: 20170922

REACTIONS (2)
  - Renal disorder [Fatal]
  - Liver disorder [Fatal]

NARRATIVE: CASE EVENT DATE: 20170922
